FAERS Safety Report 8775566 (Version 1)
Quarter: 2012Q4

REPORT INFORMATION
  Report Type: 
  Country: FR (occurrence: FR)
  Receive Date: 20120910
  Receipt Date: 20120910
  Transmission Date: 20130627
  Serious: Yes (Hospitalization)
  Sender: FDA-Public Use
  Company Number: FR-BRISTOL-MYERS SQUIBB COMPANY-16920753

PATIENT
  Age: 76 Year
  Sex: Male

DRUGS (4)
  1. COUMADIN [Suspect]
     Route: 048
  2. VIAGRA [Suspect]
     Route: 048
     Dates: start: 20120727
  3. HEMIGOXINE [Concomitant]
     Dosage: 1 tab
  4. OMEPRAZOLE [Concomitant]

REACTIONS (3)
  - Cerebral haematoma [Recovering/Resolving]
  - Rash [Recovered/Resolved]
  - Hypertension [Unknown]
